FAERS Safety Report 7898834-4 (Version None)
Quarter: 2011Q4

REPORT INFORMATION
  Report Type: 
  Country: None (occurrence: None)
  Receive Date: 20111104
  Receipt Date: 20111024
  Transmission Date: 20120403
  Serious: Yes (Hospitalization)
  Sender: FDA-Public Use
  Company Number: US-2011-10153

PATIENT
  Age: 61 Year
  Sex: Male

DRUGS (21)
  1. ESOMEPRAZOLE MAGNESIUM [Concomitant]
  2. LORAZEPAM [Concomitant]
  3. DEXAMETHASONE [Concomitant]
  4. BUSULFAN [Suspect]
     Indication: STEM CELL TRANSPLANT
     Dosage: 0.8 MG/KG, 362 MG/KG
     Dates: start: 20110308, end: 20110311
  5. BUSULFAN [Suspect]
     Indication: STEM CELL TRANSPLANT
     Dosage: 0.8 MG/KG, 362 MG/KG
     Dates: start: 20110302, end: 20110302
  6. ETOPOSIDE [Concomitant]
  7. BENADRYL MAALOX LIDOCAL [Concomitant]
  8. OXYCODONE HCL [Concomitant]
  9. SERTRALINE HCL (SERTRALINE HYDROCHLORIDE) [Concomitant]
  10. ACYCLOVIR [Concomitant]
  11. VANCOMYCIN [Concomitant]
  12. SERTRALINE HYDROCHLORIDE [Concomitant]
  13. FLLUCONAZOLE (FLUCONAZOLE) [Concomitant]
  14. ACEBUTOLOL HCL (ACEBUTOLOL HYDROCHLORIDE) [Concomitant]
  15. CYCLOPHOSPHAMIDE [Concomitant]
  16. CIPROFLOXACIN [Concomitant]
  17. LOSARTAN POTASSIUM [Concomitant]
  18. ACETAMINOPHEN [Concomitant]
  19. LIDOCAINE (LIDOCAINE HYDROCHLORIDE) [Concomitant]
  20. ONDANSETRON [Concomitant]
  21. HALOPERIDOL [Concomitant]

REACTIONS (5)
  - RENAL FAILURE ACUTE [None]
  - SEPTIC SHOCK [None]
  - CONFUSIONAL STATE [None]
  - NEPHROPATHY TOXIC [None]
  - SMALL INTESTINAL OBSTRUCTION [None]
